FAERS Safety Report 22355788 (Version 1)
Quarter: 2023Q2

REPORT INFORMATION
  Report Type: Report from Study
  Country: NL (occurrence: NL)
  Receive Date: 20230523
  Receipt Date: 20230523
  Transmission Date: 20230721
  Serious: Yes (Other)
  Sender: FDA-Public Use
  Company Number: NL-SUN PHARMACEUTICAL INDUSTRIES LTD-2023R1-389181

PATIENT
  Age: 4 Year
  Sex: Male

DRUGS (3)
  1. AZITHROMYCIN [Suspect]
     Active Substance: AZITHROMYCIN
     Indication: Pulmonary haemosiderosis
     Dosage: UNK
     Route: 065
  2. HYDROXYCHLOROQUINE [Suspect]
     Active Substance: HYDROXYCHLOROQUINE
     Indication: Pulmonary haemosiderosis
     Dosage: UNK
     Route: 065
  3. MYCOPHENOLATE MOFETIL [Suspect]
     Active Substance: MYCOPHENOLATE MOFETIL
     Indication: Pulmonary haemosiderosis
     Dosage: UNK
     Route: 065

REACTIONS (9)
  - Condition aggravated [Unknown]
  - Varicella [Unknown]
  - Adrenal insufficiency [Unknown]
  - Growth retardation [Unknown]
  - Drug ineffective [Unknown]
  - Behaviour disorder [Unknown]
  - Weight increased [Unknown]
  - Muscular weakness [Unknown]
  - Fungal infection [Unknown]
